FAERS Safety Report 5810634-5 (Version None)
Quarter: 2008Q3

REPORT INFORMATION
  Report Type: 
  Country: None (occurrence: None)
  Receive Date: 20080710
  Receipt Date: 20080627
  Transmission Date: 20090109
  Serious: Yes (Other)
  Sender: FDA-Public Use
  Company Number: US023985

PATIENT
  Age: 56 Year
  Sex: Female

DRUGS (4)
  1. OTFC [Suspect]
     Indication: BREAKTHROUGH PAIN
     Dosage: 800 MG DAILY BUCCAL
     Route: 002
  2. WELLBUTRIN [Concomitant]
  3. CYMBALTA [Concomitant]
  4. OXYCONTIN [Concomitant]

REACTIONS (1)
  - SEROTONIN SYNDROME [None]
